FAERS Safety Report 7148041-8 (Version None)
Quarter: 2010Q4

REPORT INFORMATION
  Report Type: 
  Country: None (occurrence: None)
  Receive Date: 20101209
  Receipt Date: 20101202
  Transmission Date: 20110411
  Serious: Yes (Other)
  Sender: FDA-Public Use
  Company Number: US-JNJFOC-20101105453

PATIENT
  Sex: Male
  Weight: 99.79 kg

DRUGS (8)
  1. DURAGESIC-100 [Suspect]
     Indication: PAIN
     Route: 062
  2. DURAGESIC-100 [Suspect]
     Dosage: 3 PATCHES OF 100UG/HR
     Route: 062
  3. METHADONE HCL [Concomitant]
     Indication: BREAKTHROUGH PAIN
     Dosage: AS NEEDED
     Route: 048
  4. LYRICA [Concomitant]
     Indication: BACK PAIN
     Route: 048
  5. MORPHINE SULFATE [Concomitant]
     Indication: BREAKTHROUGH PAIN
     Route: 048
  6. METFORMIN [Concomitant]
     Indication: DIABETES MELLITUS
     Route: 048
  7. LISINOPRIL [Concomitant]
     Indication: BLOOD PRESSURE
     Route: 048
  8. LIPITOR [Concomitant]
     Indication: BLOOD CHOLESTEROL
     Route: 048

REACTIONS (3)
  - DIABETES MELLITUS [None]
  - DRUG ADMINISTERED AT INAPPROPRIATE SITE [None]
  - PRODUCT ADHESION ISSUE [None]
